FAERS Safety Report 5000720-4 (Version None)
Quarter: 2006Q2

REPORT INFORMATION
  Report Type: 
  Country: None (occurrence: None)
  Receive Date: 20060512
  Receipt Date: 20060501
  Transmission Date: 20061013
  Serious: Yes (Hospitalization)
  Sender: FDA-Public Use
  Company Number: AU-AMGEN-US178141

PATIENT
  Age: 85 Year
  Sex: Male

DRUGS (12)
  1. NEUPOGEN [Suspect]
     Indication: DRUG USE FOR UNKNOWN INDICATION
     Route: 065
     Dates: start: 20050824
  2. SERETIDE [Concomitant]
     Route: 055
  3. SPIRIVA [Concomitant]
  4. BRICANYL [Concomitant]
  5. SIMVASTATIN [Concomitant]
  6. FERRO-GRADUMET [Concomitant]
  7. CALTRATE [Concomitant]
  8. ACETAMINOPHEN [Concomitant]
  9. MOBIC [Concomitant]
  10. ARANESP [Concomitant]
  11. BACTRIM DS [Concomitant]
  12. LAMISIL [Concomitant]

REACTIONS (4)
  - BACK PAIN [None]
  - DIARRHOEA [None]
  - PELVIC PAIN [None]
  - TACHYCARDIA [None]
